FAERS Safety Report 5194243-X (Version None)
Quarter: 2006Q4

REPORT INFORMATION
  Report Type: 
  Country: None (occurrence: None)
  Receive Date: 20061228
  Receipt Date: 20061121
  Transmission Date: 20070319
  Serious: Yes (Hospitalization)
  Sender: FDA-Public Use
  Company Number: US-BOEHRINGER INGELHEIM GMBH, GERMANY-2006-DE-06188GD

PATIENT
  Age: 50 Year
  Sex: Female

DRUGS (8)
  1. CALCIUM CARBONATE [Suspect]
     Dosage: 2400 MG, INCLUDING 1000 MG OF ELEMENTAL CALCIUM
     Route: 048
  2. ERGOCALCIFEROL [Suspect]
     Dosage: 800 IU (AS INGREDIENT OF ADEK VITAMINS TABLETS)
     Route: 048
  3. FUROSEMIDE [Suspect]
  4. ADEK VITAMINS [Concomitant]
     Dosage: 10800 IU OF BETA-CAROTENE; 7200 IU OF VITAMIN A-PALMITATE; 800 IU OF ERGOCALCIFEROL
     Route: 048
  5. LACTULOSE [Concomitant]
  6. SPIRONOLACTONE [Concomitant]
  7. RISENDRONATE [Concomitant]
  8. FERROUS SULFATE TAB [Concomitant]

REACTIONS (10)
  - CONDITION AGGRAVATED [None]
  - FALL [None]
  - GASTROINTESTINAL HAEMORRHAGE [None]
  - GENERAL PHYSICAL HEALTH DETERIORATION [None]
  - HEPATIC ENCEPHALOPATHY [None]
  - HEPATORENAL SYNDROME [None]
  - HYPOMAGNESAEMIA [None]
  - MILK-ALKALI SYNDROME [None]
  - PNEUMONIA [None]
  - RESPIRATORY FAILURE [None]
